FAERS Safety Report 7490531-2 (Version None)
Quarter: 2011Q2

REPORT INFORMATION
  Report Type: 
  Country: None (occurrence: None)
  Receive Date: 20110519
  Receipt Date: 20110517
  Transmission Date: 20111010
  Serious: Yes (Death, Hospitalization)
  Sender: FDA-Public Use
  Company Number: JP-SANOFI-AVENTIS-200710717JP

PATIENT
  Age: 75 Year
  Sex: Male

DRUGS (7)
  1. ASPIRIN [Concomitant]
     Route: 062
     Dates: start: 20070309
  2. SENNOSIDE A+B [Concomitant]
     Dates: start: 20070313
  3. HIRUDOID [Concomitant]
     Route: 062
     Dates: start: 20070309
  4. ALLEGRA [Suspect]
     Route: 048
     Dates: start: 20070309, end: 20070314
  5. PL GRAN. [Concomitant]
     Indication: PYREXIA
     Dates: start: 20070312, end: 20070314
  6. LEVOFLOXACIN [Suspect]
     Indication: PYREXIA
     Dates: start: 20070312, end: 20070314
  7. METHADERM [Concomitant]
     Route: 062
     Dates: start: 20070309

REACTIONS (1)
  - WHITE BLOOD CELL COUNT DECREASED [None]
